FAERS Safety Report 7903987-5 (Version None)
Quarter: 2011Q4

REPORT INFORMATION
  Report Type: 
  Country: None (occurrence: None)
  Receive Date: 20111109
  Receipt Date: 20111103
  Transmission Date: 20120403
  Serious: Yes (Other)
  Sender: FDA-Public Use
  Company Number: US-CEPHALON-2011005658

PATIENT
  Age: 46 Year
  Sex: Male

DRUGS (3)
  1. NUVIGIL [Suspect]
     Route: 048
  2. PRILOSEC [Concomitant]
  3. NUVIGIL [Suspect]
     Indication: NARCOLEPSY
     Route: 048
     Dates: start: 20100101

REACTIONS (2)
  - HYPERHIDROSIS [None]
  - TARDIVE DYSKINESIA [None]
